FAERS Safety Report 5687454-8 (Version None)
Quarter: 2008Q1

REPORT INFORMATION
  Report Type: 
  Country: None (occurrence: None)
  Receive Date: 20080328
  Receipt Date: 20070117
  Transmission Date: 20080703
  Serious: Yes (Other)
  Sender: FDA-Public Use
  Company Number: US-BAYER-US-2006-039528

PATIENT
  Age: 33 Year
  Sex: Female
  Weight: 64 kg

DRUGS (4)
  1. MIRENA [Suspect]
     Indication: CONTRACEPTION
     Route: 015
     Dates: start: 20020910, end: 20061110
  2. NAPROXEN [Concomitant]
     Indication: ABDOMINAL PAIN
     Route: 048
  3. IMITREX [Concomitant]
     Indication: MIGRAINE
     Route: 048
  4. VITAMINS [Concomitant]
     Route: 048

REACTIONS (3)
  - ABORTION MISSED [None]
  - AMENORRHOEA [None]
  - PREGNANCY WITH CONTRACEPTIVE DEVICE [None]
